FAERS Safety Report 15501786 (Version 2)
Quarter: 2018Q4

REPORT INFORMATION
  Report Type: Spontaneous
  Country: US (occurrence: US)
  Receive Date: 20181015
  Receipt Date: 20181016
  Transmission Date: 20190205
  Serious: No
  Sender: FDA-Public Use
  Company Number: US-AMGEN-USASP2018106882

PATIENT
  Age: 60 Year
  Sex: Female
  Weight: 74.38 kg

DRUGS (2)
  1. PROCRIT [Suspect]
     Active Substance: ERYTHROPOIETIN
     Indication: PRODUCT USED FOR UNKNOWN INDICATION
     Dosage: UNK
     Route: 065
  2. NEULASTA [Suspect]
     Active Substance: PEGFILGRASTIM
     Indication: PRODUCT USED FOR UNKNOWN INDICATION
     Dosage: UNK
     Route: 065

REACTIONS (3)
  - Accidental exposure to product [Unknown]
  - Peripheral swelling [Unknown]
  - Oedema peripheral [Unknown]

NARRATIVE: CASE EVENT DATE: 20180728
